FAERS Safety Report 12215325 (Version 1)
Quarter: 2016Q1

REPORT INFORMATION
  Report Type: Spontaneous
  Country: PT (occurrence: PT)
  Receive Date: 20160328
  Receipt Date: 20160328
  Transmission Date: 20160526
  Serious: Yes (Other)
  Sender: FDA-Public Use
  Company Number: PT-MYLANLABS-2016M1012627

PATIENT

DRUGS (2)
  1. ZONISAMIDE. [Suspect]
     Active Substance: ZONISAMIDE
     Indication: EPILEPSY
     Dosage: STARTED AT UNKNOWN DOSE;STOPPED ON OWN JUDGEMENT THEN STARTED AT 25MG
     Route: 065
  2. ZONISAMIDE. [Suspect]
     Active Substance: ZONISAMIDE
     Dosage: DOSE INCREASED TO 100MG PROGRESSIVELY
     Route: 065

REACTIONS (1)
  - Acute on chronic liver failure [Recovering/Resolving]
